FAERS Safety Report 6412395-8 (Version None)
Quarter: 2009Q4

REPORT INFORMATION
  Report Type: 
  Country: None (occurrence: None)
  Receive Date: 20091023
  Receipt Date: 20091021
  Transmission Date: 20100525
  Serious: Yes (Life-Threatening, Hospitalization)
  Sender: FDA-Public Use
  Company Number: JP-NOVOPROD-293146

PATIENT
  Sex: Female

DRUGS (2)
  1. NOVORAPID CHU FLEXPEN [Suspect]
     Indication: SUICIDE ATTEMPT
     Dosage: 1200 U, UNK
     Route: 058
  2. LANTUS [Suspect]
     Indication: SUICIDE ATTEMPT
     Dosage: 600 U, UNK
     Route: 058

REACTIONS (4)
  - HYPOGLYCAEMIC COMA [None]
  - INTENTIONAL OVERDOSE [None]
  - LOSS OF CONSCIOUSNESS [None]
  - SUICIDE ATTEMPT [None]
